FAERS Safety Report 14171159 (Version 3)
Quarter: 2017Q4

REPORT INFORMATION
  Report Type: Spontaneous
  Country: JP (occurrence: JP)
  Receive Date: 20171108
  Receipt Date: 20171221
  Transmission Date: 20180321
  Serious: Yes (Disabling, Other)
  Sender: FDA-Public Use
  Company Number: JP-JNJFOC-20171105502

PATIENT
  Age: 80 Year
  Sex: Male
  Weight: 65 kg

DRUGS (3)
  1. MAINTATE [Concomitant]
     Active Substance: BISOPROLOL FUMARATE
     Route: 048
  2. XARELTO [Suspect]
     Active Substance: RIVAROXABAN
     Indication: ATRIAL FIBRILLATION
     Route: 048
  3. CARDENALIN [Concomitant]
     Active Substance: DOXAZOSIN MESYLATE
     Route: 048

REACTIONS (1)
  - Cerebral infarction [Recovered/Resolved with Sequelae]

NARRATIVE: CASE EVENT DATE: 20170321
